FAERS Safety Report 6665546-4 (Version None)
Quarter: 2010Q1

REPORT INFORMATION
  Report Type: 
  Country: None (occurrence: None)
  Receive Date: 20100330
  Receipt Date: 20100319
  Transmission Date: 20100710
  Serious: Yes (Other)
  Sender: FDA-Public Use
  Company Number: 231557J10USA

PATIENT
  Age: 31 Year
  Sex: Female

DRUGS (10)
  1. REBIF [Suspect]
     Indication: MULTIPLE SCLEROSIS
     Dosage: 44 MCG, 3 IN 1 WEEKS, SUBCUTANEOUS
     Route: 058
     Dates: start: 20090325
  2. GLUCOPHAGE [Concomitant]
  3. GLIMEPIRIDE [Concomitant]
  4. LANTUS [Concomitant]
  5. LIPITOR [Concomitant]
  6. NIACIN [Concomitant]
  7. ZOLOFT (SERTRALINEI) [Concomitant]
  8. XANAX [Concomitant]
  9. TOPAMAX [Concomitant]
  10. RESTORIL [Concomitant]

REACTIONS (4)
  - DIABETES MELLITUS INADEQUATE CONTROL [None]
  - FACE INJURY [None]
  - FALL [None]
  - LOSS OF CONSCIOUSNESS [None]
